FAERS Safety Report 26034280 (Version 2)
Quarter: 2025Q4

REPORT INFORMATION
  Report Type: Spontaneous
  Country: US (occurrence: US)
  Receive Date: 20251112
  Receipt Date: 20251127
  Transmission Date: 20260118
  Serious: Yes (Hospitalization)
  Sender: BAUSCH AND LOMB
  Company Number: US-BAUSCHBL-2025BNL031543

PATIENT
  Age: 6 Year
  Sex: Male

DRUGS (2)
  1. DEXAMETHASONE [Suspect]
     Active Substance: DEXAMETHASONE
     Indication: B-cell type acute leukaemia
     Route: 065
  2. CALASPARGASE PEGOL [Concomitant]
     Active Substance: CALASPARGASE PEGOL
     Indication: Product used for unknown indication
     Dosage: SEVEN DOSES, 2500 UNITS/M2

REACTIONS (1)
  - Hyperglycaemia [Unknown]
